FAERS Safety Report 19876493 (Version 1)
Quarter: 2021Q3

REPORT INFORMATION
  Report Type: Spontaneous
  Country: US (occurrence: US)
  Receive Date: 20210924
  Receipt Date: 20210924
  Transmission Date: 20211014
  Serious: No
  Sender: FDA-Public Use
  Company Number: US-JNJFOC-20210925877

PATIENT
  Age: 84 Year
  Sex: Female

DRUGS (1)
  1. PEPCID AC [Suspect]
     Active Substance: FAMOTIDINE
     Indication: GASTROOESOPHAGEAL REFLUX DISEASE
     Dosage: ONE TABLET A DAY. ONCE A DAY; 3 MONTHS AGO.
     Route: 065
     Dates: start: 2021

REACTIONS (1)
  - Headache [Unknown]

NARRATIVE: CASE EVENT DATE: 2021
